FAERS Safety Report 6825474-8 (Version None)
Quarter: 2010Q3

REPORT INFORMATION
  Report Type: 
  Country: None (occurrence: None)
  Receive Date: 20100708
  Receipt Date: 20070326
  Transmission Date: 20110219
  Serious: No
  Sender: FDA-Public Use
  Company Number: US-PFIZER INC-2006153552

PATIENT
  Sex: Female
  Weight: 49.9 kg

DRUGS (10)
  1. CHANTIX [Suspect]
     Indication: SMOKING CESSATION THERAPY
     Route: 048
     Dates: start: 20061120
  2. CHANTIX [Suspect]
     Indication: TOBACCO ABUSE
  3. LIPITOR [Suspect]
  4. VYTORIN [Concomitant]
     Indication: BLOOD CHOLESTEROL INCREASED
  5. TRICOR [Concomitant]
     Indication: BLOOD CHOLESTEROL INCREASED
  6. PREVACID [Concomitant]
  7. VITAMINS [Concomitant]
  8. ALL OTHER THERAPEUTIC PRODUCTS [Concomitant]
     Indication: FATIGUE
  9. ALL OTHER THERAPEUTIC PRODUCTS [Concomitant]
     Indication: HYPERLIPIDAEMIA
  10. ALL OTHER THERAPEUTIC PRODUCTS [Concomitant]
     Indication: THROMBOCYTOSIS

REACTIONS (6)
  - BLOOD ALKALINE PHOSPHATASE INCREASED [None]
  - DIZZINESS [None]
  - HEADACHE [None]
  - NAUSEA [None]
  - NECK PAIN [None]
  - WEIGHT INCREASED [None]
